FAERS Safety Report 8553331-8 (Version None)
Quarter: 2012Q3

REPORT INFORMATION
  Report Type: 
  Country: None (occurrence: None)
  Receive Date: 20120731
  Receipt Date: 20120727
  Transmission Date: 20120928
  Serious: Yes (Other)
  Sender: FDA-Public Use
  Company Number: CA-ROCHE-1090070

PATIENT
  Sex: Female
  Weight: 68.1 kg

DRUGS (6)
  1. FOLIC ACID [Concomitant]
  2. METHOTREXATE [Concomitant]
  3. ACTEMRA [Suspect]
     Indication: RHEUMATOID ARTHRITIS
     Route: 042
     Dates: start: 20101209
  4. MULTI-VITAMIN [Concomitant]
  5. TYLENOL (CAPLET) [Concomitant]
  6. MELOXICAM [Concomitant]

REACTIONS (1)
  - BUNION OPERATION [None]
